FAERS Safety Report 10475087 (Version 1)
Quarter: 2014Q3

REPORT INFORMATION
  Report Type: Spontaneous
  Country: US (occurrence: None)
  Receive Date: 20140924
  Receipt Date: 20140924
  Transmission Date: 20150326
  Serious: Yes (Other)
  Sender: FDA-Public Use
  Company Number: None

PATIENT
  Age: 44 Year
  Sex: Male
  Weight: 66.8 kg

DRUGS (1)
  1. OLANZAPINE. [Suspect]
     Active Substance: OLANZAPINE
     Indication: BIPOLAR DISORDER
     Dosage: 10MG, 1 Q D, PO
     Route: 048
     Dates: start: 20060830, end: 20111104

REACTIONS (2)
  - Hyperhidrosis [None]
  - Convulsion [None]

NARRATIVE: CASE EVENT DATE: 20111104
